FAERS Safety Report 12709144 (Version 1)
Quarter: 2016Q3

REPORT INFORMATION
  Report Type: Spontaneous
  Country: US (occurrence: None)
  Receive Date: 20160901
  Receipt Date: 20160901
  Transmission Date: 20161109
  Serious: Yes (Disabling)
  Sender: FDA-Public Use
  Company Number: None

PATIENT
  Age: 0 Day
  Sex: Male
  Weight: 4.99 kg

DRUGS (1)
  1. D- VITADROPS, 400 ML MAJOR [Suspect]
     Active Substance: CHOLECALCIFEROL
     Indication: VITAMIN SUPPLEMENTATION
     Dosage: 1 DROP(S) ONCE A DAY TAKEN BY MOUTH
     Route: 048
     Dates: start: 20160405, end: 20160701

REACTIONS (1)
  - Vomiting [None]

NARRATIVE: CASE EVENT DATE: 20160405
